FAERS Safety Report 15430229 (Version 1)
Quarter: 2018Q3

REPORT INFORMATION
  Report Type: Spontaneous
  Country: US (occurrence: US)
  Receive Date: 20180920
  Receipt Date: 20180920
  Transmission Date: 20181010
  Serious: No
  Sender: FDA-Public Use
  Company Number: None

PATIENT
  Age: 51 Year
  Sex: Female

DRUGS (1)
  1. KISQALI FEMARA CO?PACK [Suspect]
     Active Substance: LETROZOLE\RIBOCICLIB
     Dosage: ?          OTHER FREQUENCY:OTHER;?
     Route: 048
     Dates: start: 20180912

REACTIONS (3)
  - Fatigue [None]
  - Nausea [None]
  - Decreased appetite [None]

NARRATIVE: CASE EVENT DATE: 20180913
